FAERS Safety Report 4809687-2 (Version None)
Quarter: 2005Q4

REPORT INFORMATION
  Report Type: 
  Country: None (occurrence: None)
  Receive Date: 20051021
  Receipt Date: 20051007
  Transmission Date: 20060501
  Serious: Yes (Hospitalization, Other)
  Sender: FDA-Public Use
  Company Number: 190369

PATIENT
  Age: 50 Year
  Sex: Female
  Weight: 58.9676 kg

DRUGS (2)
  1. AVONEX [Suspect]
     Indication: MULTIPLE SCLEROSIS
     Dosage: 30 UG QW IM
     Route: 030
     Dates: start: 20030304
  2. AVONEX [Suspect]
     Indication: MULTIPLE SCLEROSIS
     Dosage: 30 UG QW IM
     Route: 030

REACTIONS (10)
  - ANAEMIA [None]
  - BLINDNESS [None]
  - COLONOSCOPY [None]
  - CONDITION AGGRAVATED [None]
  - HAEMATOCRIT DECREASED [None]
  - OPTIC NERVE DISORDER [None]
  - PERIPHERAL VASCULAR DISORDER [None]
  - PLATELET COUNT INCREASED [None]
  - SARCOIDOSIS [None]
  - WHITE BLOOD CELL COUNT INCREASED [None]
